FAERS Safety Report 9647868 (Version 1)
Quarter: 2013Q4

REPORT INFORMATION
  Report Type: Spontaneous
  Country: US (occurrence: US)
  Receive Date: 20131028
  Receipt Date: 20131028
  Transmission Date: 20140711
  Serious: No
  Sender: FDA-Public Use
  Company Number: US-PFIZER INC-2013302390

PATIENT
  Age: 52 Year
  Sex: Male
  Weight: 119 kg

DRUGS (1)
  1. ADVIL [Suspect]
     Indication: HEADACHE
     Dosage: 200 MG, DAILY
     Dates: start: 2009

REACTIONS (1)
  - Drug ineffective [Unknown]
